FAERS Safety Report 17375433 (Version 1)
Quarter: 2020Q1

REPORT INFORMATION
  Report Type: Spontaneous
  Country: TR (occurrence: TR)
  Receive Date: 20200206
  Receipt Date: 20200206
  Transmission Date: 20200409
  Serious: Yes (Other)
  Sender: FDA-Public Use
  Company Number: TR-ROCHE-2532572

PATIENT
  Age: 69 Year

DRUGS (1)
  1. ALTUZAN [Suspect]
     Active Substance: BEVACIZUMAB
     Indication: DIABETIC RETINAL OEDEMA
     Route: 050
     Dates: start: 20200117, end: 20200117

REACTIONS (4)
  - Endophthalmitis [Unknown]
  - Off label use [Unknown]
  - Intentional product use issue [Unknown]
  - Visual impairment [Unknown]

NARRATIVE: CASE EVENT DATE: 20200117
